FAERS Safety Report 7131562-1 (Version None)
Quarter: 2010Q4

REPORT INFORMATION
  Report Type: 
  Country: None (occurrence: None)
  Receive Date: 20101201
  Receipt Date: 20101119
  Transmission Date: 20110411
  Serious: Yes (Hospitalization)
  Sender: FDA-Public Use
  Company Number: AU-ELI_LILLY_AND_COMPANY-AU201010005002

PATIENT
  Sex: Female

DRUGS (4)
  1. GEMCITABINE HCL [Suspect]
     Indication: PANCREATIC CARCINOMA
     Dosage: 1000 MG/M2 (1370MG),
     Route: 065
     Dates: start: 20100825
  2. MIRTAZAPINE [Concomitant]
     Indication: PROPHYLAXIS
     Dosage: UNK, UNK
     Route: 048
     Dates: start: 20100601
  3. DEXAMETHASONE [Concomitant]
     Indication: NEOPLASM MALIGNANT
     Route: 055
  4. METHADONE HYDROCHLORIDE [Concomitant]
     Route: 048

REACTIONS (1)
  - PNEUMONIA [None]
